FAERS Safety Report 11747782 (Version 1)
Quarter: 2015Q4

REPORT INFORMATION
  Report Type: Report from Study
  Country: NL (occurrence: NL)
  Receive Date: 20151117
  Receipt Date: 20151117
  Transmission Date: 20160304
  Serious: Yes (Death, Life-Threatening, Hospitalization, Disabling)
  Sender: FDA-Public Use
  Company Number: NL-MERCK-1408NLD005043

PATIENT
  Age: 56 Year
  Sex: Female
  Weight: 89 kg

DRUGS (2)
  1. PEMBROLIZUMAB. [Suspect]
     Active Substance: PEMBROLIZUMAB
     Indication: METASTATIC MALIGNANT MELANOMA
     Dosage: 2MG/KG (DOSE: 178 MG), ONCE
     Route: 042
     Dates: start: 20140729, end: 20140729
  2. OMEPRAZOLE. [Concomitant]
     Active Substance: OMEPRAZOLE
     Indication: PRODUCT USED FOR UNKNOWN INDICATION
     Dosage: 40 MG, QD
     Route: 048

REACTIONS (5)
  - Polyarthritis [Unknown]
  - Serum sickness [Unknown]
  - Granulomatosis with polyangiitis [Unknown]
  - Death [Fatal]
  - Pneumonitis [Unknown]

NARRATIVE: CASE EVENT DATE: 20140807
